FAERS Safety Report 10263040 (Version 2)
Quarter: 2014Q2

REPORT INFORMATION
  Report Type: Report from Study
  Country: US (occurrence: US)
  Receive Date: 20140626
  Receipt Date: 20140626
  Transmission Date: 20141212
  Serious: Yes (Death)
  Sender: FDA-Public Use
  Company Number: US-MYLANLABS-2013S1027826

PATIENT
  Age: 37 Year
  Sex: Female
  Weight: 119.3 kg

DRUGS (10)
  1. CLOZAPINE TABLETS [Suspect]
     Indication: SCHIZOAFFECTIVE DISORDER
     Route: 048
     Dates: start: 2012
  2. CLOZAPINE TABLETS [Suspect]
     Indication: SCHIZOAFFECTIVE DISORDER
     Route: 048
     Dates: start: 2012
  3. TEMAZEPAM [Concomitant]
     Route: 048
  4. COGENTIN [Concomitant]
     Route: 048
  5. BENZOTROPINE [Concomitant]
     Route: 048
  6. LAMICTAL [Concomitant]
     Route: 048
  7. LITHIUM [Concomitant]
     Route: 048
  8. CLONAZEPAM [Concomitant]
     Route: 048
  9. HALDOL [Concomitant]
     Route: 048
  10. PRISTIQ [Concomitant]

REACTIONS (1)
  - Death [Fatal]
